FAERS Safety Report 23167380 (Version 1)
Quarter: 2023Q4

REPORT INFORMATION
  Report Type: Spontaneous
  Country: JP (occurrence: JP)
  Receive Date: 20231109
  Receipt Date: 20231109
  Transmission Date: 20240109
  Serious: Yes (Other)
  Sender: FDA-Public Use
  Company Number: JP-RADIUS HEALTH, INC.-2023JP002042

PATIENT
  Age: 64 Year
  Sex: Female

DRUGS (1)
  1. ABALOPARATIDE [Suspect]
     Active Substance: ABALOPARATIDE
     Indication: Product used for unknown indication
     Dosage: 80 MICROGRAM
     Route: 058
     Dates: start: 20230323

REACTIONS (6)
  - Internal haemorrhage [Unknown]
  - Palpitations [Not Recovered/Not Resolved]
  - Physical deconditioning [Not Recovered/Not Resolved]
  - Adverse reaction [Unknown]
  - Bone density decreased [Unknown]
  - Dizziness [Unknown]

NARRATIVE: CASE EVENT DATE: 20230101
